FAERS Safety Report 17019298 (Version 1)
Quarter: 2019Q4

REPORT INFORMATION
  Report Type: Spontaneous
  Country: FR (occurrence: FR)
  Receive Date: 20191112
  Receipt Date: 20191112
  Transmission Date: 20200122
  Serious: Yes (Hospitalization, Other)
  Sender: FDA-Public Use
  Company Number: FR-SA-2019SA243156

PATIENT
  Age: 6 Year
  Sex: Female

DRUGS (5)
  1. ROTATEQ [Suspect]
     Active Substance: HUMAN ROTAVIRUS A TYPE G1P7(5) STRAIN WI79 LIVE ANTIGEN\HUMAN ROTAVIRUS A TYPE G2P7(5) STRAIN SC2 LIVE ANTIGEN\HUMAN ROTAVIRUS A TYPE G3P7(5) STRAIN WI78 LIVE ANTIGEN\HUMAN ROTAVIRUS A TYPE G4P7(5) STRAIN BRB LIVE ANTIGEN\HUMAN ROTAVIRUS A TYPE G6P1A(8) STRAIN WI79 LIVE ANTIGEN
     Indication: IMMUNISATION
     Dosage: UNK
     Route: 048
     Dates: start: 20130314
  2. TUBERTEST [Suspect]
     Active Substance: TUBERCULIN PURIFIED PROTEIN DERIVATIVE
     Indication: TUBERCULIN TEST
     Dosage: 0.1 ML
     Route: 023
     Dates: start: 20130628, end: 20130628
  3. BCG VACCINE SSI [Suspect]
     Active Substance: BACILLUS CALMETTE-GUERIN SUBSTRAIN DANISH 1331 LIVE ANTIGEN
     Indication: IMMUNISATION
     Dosage: .05 ML
     Route: 065
     Dates: start: 20130625
  4. ROTATEQ [Suspect]
     Active Substance: HUMAN ROTAVIRUS A TYPE G1P7(5) STRAIN WI79 LIVE ANTIGEN\HUMAN ROTAVIRUS A TYPE G2P7(5) STRAIN SC2 LIVE ANTIGEN\HUMAN ROTAVIRUS A TYPE G3P7(5) STRAIN WI78 LIVE ANTIGEN\HUMAN ROTAVIRUS A TYPE G4P7(5) STRAIN BRB LIVE ANTIGEN\HUMAN ROTAVIRUS A TYPE G6P1A(8) STRAIN WI79 LIVE ANTIGEN
     Dosage: UNK
  5. ROTATEQ [Suspect]
     Active Substance: HUMAN ROTAVIRUS A TYPE G1P7(5) STRAIN WI79 LIVE ANTIGEN\HUMAN ROTAVIRUS A TYPE G2P7(5) STRAIN SC2 LIVE ANTIGEN\HUMAN ROTAVIRUS A TYPE G3P7(5) STRAIN WI78 LIVE ANTIGEN\HUMAN ROTAVIRUS A TYPE G4P7(5) STRAIN BRB LIVE ANTIGEN\HUMAN ROTAVIRUS A TYPE G6P1A(8) STRAIN WI79 LIVE ANTIGEN
     Dosage: UNK
     Route: 048
     Dates: start: 20130418

REACTIONS (9)
  - Discomfort [Unknown]
  - Lymphadenopathy [Unknown]
  - Disseminated Bacillus Calmette-Guerin infection [Unknown]
  - Vaccination site abscess [Unknown]
  - Lymph node tuberculosis [Unknown]
  - Pyrexia [Unknown]
  - Productive cough [Unknown]
  - Vaccination site scar [Unknown]
  - Synovial cyst [Unknown]

NARRATIVE: CASE EVENT DATE: 20130630
